FAERS Safety Report 12412714 (Version 1)
Quarter: 2016Q2

REPORT INFORMATION
  Report Type: Spontaneous
  Country: US (occurrence: US)
  Receive Date: 20160527
  Receipt Date: 20160527
  Transmission Date: 20160815
  Serious: No
  Sender: FDA-Public Use
  Company Number: US-TEIKOKU PHARMA USA-TPU2016-00328

PATIENT
  Sex: Female
  Weight: 99.88 kg

DRUGS (4)
  1. LIDOCAINE PATCH [Suspect]
     Active Substance: LIDOCAINE
     Indication: BACK PAIN
     Dosage: SOMETIMES FOR MORE THAN 12 HOURS
     Route: 061
  2. PERCOCET [Concomitant]
     Active Substance: ACETAMINOPHEN\OXYCODONE HYDROCHLORIDE
     Indication: PAIN
     Dosage: ONE 10/325MG TABLET BY MOUTH AS NEEDED
     Route: 048
     Dates: start: 2014
  3. ZIFAXAN [Concomitant]
     Indication: CONSTIPATION
     Route: 048
     Dates: start: 201511
  4. MAXZIDE [Concomitant]
     Active Substance: HYDROCHLOROTHIAZIDE\TRIAMTERENE
     Indication: HYPERTENSION
     Dosage: ONE 75/50MG TABLET BY MOUTH ONCE A DAY
     Route: 048

REACTIONS (1)
  - Incorrect drug administration duration [Unknown]
